FAERS Safety Report 11836258 (Version 1)
Quarter: 2015Q4

REPORT INFORMATION
  Report Type: Spontaneous
  Country: US (occurrence: US)
  Receive Date: 20151215
  Receipt Date: 20151215
  Transmission Date: 20160305
  Serious: No
  Sender: FDA-Public Use
  Company Number: US-GE HEALTHCARE MEDICAL DIAGNOSTICS-OMPQ-PR-1508S-1321

PATIENT
  Age: 37 Year
  Sex: Male
  Weight: 103.06 kg

DRUGS (2)
  1. OMNIPAQUE [Suspect]
     Active Substance: IOHEXOL
     Indication: SALIVARY GLAND NEOPLASM
     Route: 042
     Dates: start: 20150805, end: 20150805
  2. OMNIPAQUE [Suspect]
     Active Substance: IOHEXOL
     Indication: DIAGNOSTIC PROCEDURE

REACTIONS (2)
  - Nasal congestion [Unknown]
  - Sneezing [Unknown]

NARRATIVE: CASE EVENT DATE: 20150805
